APPROVED DRUG PRODUCT: AXTLE
Active Ingredient: PEMETREXED DIPOTASSIUM
Strength: EQ 500MG BASE/VIAL
Dosage Form/Route: POWDER;INTRAVENOUS
Application: N210661 | Product #002
Applicant: AVYXA HOLDINGS LLC
Approved: Jun 28, 2024 | RLD: Yes | RS: Yes | Type: RX